FAERS Safety Report 9330873 (Version 3)
Quarter: 2013Q2

REPORT INFORMATION
  Report Type: Spontaneous
  Country: US (occurrence: None)
  Receive Date: 20130531
  Receipt Date: 20130618
  Transmission Date: 20140414
  Serious: Yes (Hospitalization, Disabling)
  Sender: FDA-Public Use
  Company Number: 1728044

PATIENT
  Age: 49 Year
  Sex: Male

DRUGS (12)
  1. HYDROMORPHONE [Suspect]
     Indication: PRODUCT USED FOR UNKNOWN INDICATION
     Dosage: 10 MG MILLIGRAM(S) ( AS NECESSARY ), OTHER
  2. (VANCOMYCIN) [Concomitant]
  3. (ZOSYN) [Concomitant]
  4. (DILAUDID) [Concomitant]
  5. (INSULIN) [Concomitant]
  6. (CREON) [Concomitant]
  7. (ASPIRIN) [Concomitant]
  8. (GABAPENTIN) [Concomitant]
  9. (VIT D) [Concomitant]
  10. (VENLAFAXINE) [Concomitant]
  11. (COMPAZINE /0003302) [Concomitant]
  12. (IRON) [Concomitant]

REACTIONS (4)
  - Spinal cord infection [None]
  - Product tampering [None]
  - Intraspinal abscess [None]
  - Central nervous system infection [None]
